FAERS Safety Report 14272195 (Version 1)
Quarter: 2017Q4

REPORT INFORMATION
  Report Type: Spontaneous
  Country: US (occurrence: US)
  Receive Date: 20171211
  Receipt Date: 20171211
  Transmission Date: 20180321
  Serious: Yes (Other)
  Sender: FDA-Public Use
  Company Number: US-TEVA-2017-US-831055

PATIENT
  Age: 64 Year
  Sex: Female
  Weight: 61 kg

DRUGS (5)
  1. METHSCOPOLAMINE [Suspect]
     Active Substance: METHSCOPOLAMINE\METHSCOPOLAMINE BROMIDE
     Dates: end: 20171111
  2. TOPROL XL [Concomitant]
     Active Substance: METOPROLOL SUCCINATE
     Indication: ATRIAL FIBRILLATION
  3. OTEZLA [Concomitant]
     Active Substance: APREMILAST
     Indication: PSORIASIS
  4. QVAR [Suspect]
     Active Substance: BECLOMETHASONE DIPROPIONATE
     Indication: ASTHMA
     Route: 055
     Dates: start: 20171111, end: 20171126
  5. ARIMIDEX [Concomitant]
     Active Substance: ANASTROZOLE

REACTIONS (5)
  - Breast pain [Unknown]
  - Chest pain [Unknown]
  - Cough [Unknown]
  - Tinnitus [Unknown]
  - Breast tenderness [Unknown]

NARRATIVE: CASE EVENT DATE: 20171117
